FAERS Safety Report 14526170 (Version 1)
Quarter: 2018Q1

REPORT INFORMATION
  Report Type: Spontaneous
  Country: AR (occurrence: AR)
  Receive Date: 20180213
  Receipt Date: 20180213
  Transmission Date: 20180509
  Serious: Yes (Other)
  Sender: FDA-Public Use
  Company Number: AR-HERITAGE PHARMACEUTICALS-2018HTG00020

PATIENT
  Age: 49 Year
  Sex: Female

DRUGS (2)
  1. ACETAZOLAMIDE. [Suspect]
     Active Substance: ACETAZOLAMIDE
     Dosage: 500 MG (2 TABLETS), ONCE
     Route: 048
  2. ACETAZOLAMIDE. [Suspect]
     Active Substance: ACETAZOLAMIDE
     Indication: PROPHYLAXIS
     Dosage: 1 G (4 TABLETS), ONCE
     Route: 048

REACTIONS (3)
  - Vitritis [Recovered/Resolved]
  - Vitreous detachment [Recovered/Resolved]
  - Angle closure glaucoma [Recovered/Resolved]
